FAERS Safety Report 4898635-5 (Version None)
Quarter: 2006Q1

REPORT INFORMATION
  Report Type: 
  Country: None (occurrence: None)
  Receive Date: 20060130
  Receipt Date: 20060124
  Transmission Date: 20060701
  Serious: Yes (Hospitalization, Other)
  Sender: FDA-Public Use
  Company Number: HQWYE162103JAN06

PATIENT
  Age: 66 Year
  Sex: Female

DRUGS (3)
  1. ADVIL [Suspect]
     Dosage: ORAL
     Route: 048
     Dates: start: 20051101
  2. SIMVASTATIN [Suspect]
     Dosage: 20 MG COATED TABLET DAILY
     Dates: end: 20051201
  3. OROCAL (CALCIUM CARBONATE) [Concomitant]

REACTIONS (7)
  - ANAEMIA [None]
  - COAGULATION FACTOR DECREASED [None]
  - EPISTAXIS [None]
  - HAEMORRHAGIC DISORDER [None]
  - PROTHROMBIN LEVEL DECREASED [None]
  - PURPURA [None]
  - PYREXIA [None]
